FAERS Safety Report 16446811 (Version 2)
Quarter: 2019Q2

REPORT INFORMATION
  Report Type: Spontaneous
  Country: US (occurrence: US)
  Receive Date: 20190618
  Receipt Date: 20190620
  Transmission Date: 20190711
  Serious: No
  Sender: FDA-Public Use
  Company Number: US-PFIZER INC-2019257802

PATIENT

DRUGS (2)
  1. SODIUM CHLORIDE. [Interacting]
     Active Substance: SODIUM CHLORIDE
     Dosage: UNK
     Route: 042
  2. CIPROFLOXACIN. [Suspect]
     Active Substance: CIPROFLOXACIN
     Dosage: UNK
     Route: 042

REACTIONS (3)
  - Drug interaction [Unknown]
  - Product administration error [Unknown]
  - Product deposit [Unknown]
